FAERS Safety Report 6303876-6 (Version None)
Quarter: 2009Q3

REPORT INFORMATION
  Report Type: 
  Country: None (occurrence: None)
  Receive Date: 20090807
  Receipt Date: 20090807
  Transmission Date: 20100115
  Serious: Yes (Hospitalization)
  Sender: FDA-Public Use
  Company Number: None

PATIENT
  Sex: Female
  Weight: 72.1 kg

DRUGS (1)
  1. TAXOL [Suspect]
     Dosage: 320 MG

REACTIONS (4)
  - ANAEMIA [None]
  - FATIGUE [None]
  - NAUSEA [None]
  - VOMITING [None]
